FAERS Safety Report 19901566 (Version 1)
Quarter: 2021Q3

REPORT INFORMATION
  Report Type: Spontaneous
  Country: NO (occurrence: NO)
  Receive Date: 20210929
  Receipt Date: 20210929
  Transmission Date: 20211014
  Serious: Yes (Life-Threatening, Hospitalization, Disabling)
  Sender: FDA-Public Use
  Company Number: NVSC2021NO221218

PATIENT
  Age: 41 Year
  Sex: Female

DRUGS (1)
  1. COSENTYX [Suspect]
     Active Substance: SECUKINUMAB
     Indication: SPONDYLITIS
     Dosage: UNK
     Route: 058
     Dates: start: 20171207, end: 20210701

REACTIONS (1)
  - Colon cancer [Not Recovered/Not Resolved]

NARRATIVE: CASE EVENT DATE: 20210623
